FAERS Safety Report 11742189 (Version 2)
Quarter: 2016Q1

REPORT INFORMATION
  Report Type: Spontaneous
  Country: US (occurrence: US)
  Receive Date: 20151116
  Receipt Date: 20160111
  Transmission Date: 20160525
  Serious: No
  Sender: FDA-Public Use
  Company Number: US-ACTELION PHARMACEUTICALS US, INC.-A-NJ2014-97265

PATIENT
  Age: 56 Year
  Sex: Female

DRUGS (5)
  1. SILDENAFIL. [Concomitant]
     Active Substance: SILDENAFIL
  2. COUMADIN [Concomitant]
     Active Substance: WARFARIN SODIUM
  3. DIGOXIN. [Concomitant]
     Active Substance: DIGOXIN
  4. TRACLEER [Suspect]
     Active Substance: BOSENTAN
     Indication: PULMONARY ARTERIAL HYPERTENSION
     Dosage: UNK
     Route: 048
  5. RIOCIGUAT [Concomitant]
     Active Substance: RIOCIGUAT

REACTIONS (11)
  - Headache [Unknown]
  - Nausea [Unknown]
  - Hypotension [Unknown]
  - Palpitations [Unknown]
  - Fatigue [Unknown]
  - Vomiting [Unknown]
  - Hernia [Unknown]
  - Cough [Unknown]
  - Dyspnoea [Unknown]
  - Oedema [Unknown]
  - Dizziness [Unknown]
